FAERS Safety Report 10447285 (Version 1)
Quarter: 2014Q3

REPORT INFORMATION
  Report Type: Spontaneous
  Country: US (occurrence: US)
  Receive Date: 20140911
  Receipt Date: 20140911
  Transmission Date: 20150326
  Serious: Yes (Hospitalization)
  Sender: FDA-Public Use
  Company Number: US-BAYER-2014-134904

PATIENT
  Sex: Male

DRUGS (1)
  1. STIVARGA [Suspect]
     Active Substance: REGORAFENIB
     Dosage: DAILY DOSE 120 MG
     Route: 048
     Dates: start: 2014, end: 2014

REACTIONS (2)
  - Urinary tract infection [None]
  - Pyrexia [None]

NARRATIVE: CASE EVENT DATE: 2014
